FAERS Safety Report 7366314-0 (Version None)
Quarter: 2011Q1

REPORT INFORMATION
  Report Type: 
  Country: None (occurrence: None)
  Receive Date: 20110309
  Receipt Date: 20110228
  Transmission Date: 20110831
  Serious: Yes (Life-Threatening, Hospitalization)
  Sender: FDA-Public Use
  Company Number: DKLU1067690

PATIENT
  Age: 17 Year
  Sex: Female

DRUGS (16)
  1. CYCLOPHOSPHAMIDE (CYCLOPHOSPHAMIDE) (INTRAVENOUS INFUSION) [Suspect]
     Indication: GESTATIONAL TROPHOBLASTIC TUMOUR
     Dosage: (CYCLE 1, INTRAVENOUS (NOT OTHERWISE SPECIFIED)) (CYCLE 2, INTRAVENOUS (NOT OTHERWISE SPECIFIED)) (C
     Route: 042
     Dates: start: 20081001, end: 20081002
  2. CYCLOPHOSPHAMIDE (CYCLOPHOSPHAMIDE) (INTRAVENOUS INFUSION) [Suspect]
     Indication: GESTATIONAL TROPHOBLASTIC TUMOUR
     Dosage: (CYCLE 1, INTRAVENOUS (NOT OTHERWISE SPECIFIED)) (CYCLE 2, INTRAVENOUS (NOT OTHERWISE SPECIFIED)) (C
     Route: 042
     Dates: start: 20080928, end: 20080928
  3. CYCLOPHOSPHAMIDE (CYCLOPHOSPHAMIDE) (INTRAVENOUS INFUSION) [Suspect]
     Indication: GESTATIONAL TROPHOBLASTIC TUMOUR
     Dosage: (CYCLE 1, INTRAVENOUS (NOT OTHERWISE SPECIFIED)) (CYCLE 2, INTRAVENOUS (NOT OTHERWISE SPECIFIED)) (C
     Route: 042
     Dates: start: 20080929, end: 20080929
  4. COSMEGEN (DACTINOMYCIN) (0.5 MG, INTRAVENOUS INFUSION) [Suspect]
     Indication: GESTATIONAL TROPHOBLASTIC TUMOUR
     Dosage: (0.5 MG MILLIGRAM(S), CYCLE 1, INTRAVENOUS (NOT OTHERWISE SPECIFIED)) (0.25 MG MILLIGRAM(S), CYCLE 2
     Route: 042
     Dates: start: 20081001, end: 20081002
  5. COSMEGEN (DACTINOMYCIN) (0.5 MG, INTRAVENOUS INFUSION) [Suspect]
     Indication: GESTATIONAL TROPHOBLASTIC TUMOUR
     Dosage: (0.5 MG MILLIGRAM(S), CYCLE 1, INTRAVENOUS (NOT OTHERWISE SPECIFIED)) (0.25 MG MILLIGRAM(S), CYCLE 2
     Route: 042
     Dates: start: 20080928, end: 20080928
  6. COSMEGEN (DACTINOMYCIN) (0.5 MG, INTRAVENOUS INFUSION) [Suspect]
     Indication: GESTATIONAL TROPHOBLASTIC TUMOUR
     Dosage: (0.5 MG MILLIGRAM(S), CYCLE 1, INTRAVENOUS (NOT OTHERWISE SPECIFIED)) (0.25 MG MILLIGRAM(S), CYCLE 2
     Route: 042
     Dates: start: 20080929, end: 20080929
  7. COSMEGEN (DACTINOMYCIN) (0.5 MG, INTRAVENOUS INFUSION) [Suspect]
     Indication: GESTATIONAL TROPHOBLASTIC TUMOUR
     Dosage: (0.5 MG MILLIGRAM(S), CYCLE 1, INTRAVENOUS (NOT OTHERWISE SPECIFIED)) (0.25 MG MILLIGRAM(S), CYCLE 2
     Route: 042
     Dates: start: 20081001, end: 20081002
  8. VINCRISTINE (VINCRISTINE) (INTRAVENOUS INFUSION) [Suspect]
     Indication: GESTATIONAL TROPHOBLASTIC TUMOUR
     Dosage: (CYCLES 3 + 4, INTRAVENOUS (NOT OTHERWISE SPECIFIED)) (CYCLE 2, INTRAVENOUS (NOT OTHERWISE SPECIFIED
     Route: 042
     Dates: start: 20081001, end: 20081002
  9. VINCRISTINE (VINCRISTINE) (INTRAVENOUS INFUSION) [Suspect]
     Indication: GESTATIONAL TROPHOBLASTIC TUMOUR
     Dosage: (CYCLES 3 + 4, INTRAVENOUS (NOT OTHERWISE SPECIFIED)) (CYCLE 2, INTRAVENOUS (NOT OTHERWISE SPECIFIED
     Route: 042
     Dates: start: 20080928, end: 20080928
  10. VINCRISTINE (VINCRISTINE) (INTRAVENOUS INFUSION) [Suspect]
     Indication: GESTATIONAL TROPHOBLASTIC TUMOUR
     Dosage: (CYCLES 3 + 4, INTRAVENOUS (NOT OTHERWISE SPECIFIED)) (CYCLE 2, INTRAVENOUS (NOT OTHERWISE SPECIFIED
     Route: 042
     Dates: start: 20080929, end: 20080929
  11. METHOTREXATE (METHOTREXATE) (INTRAVENOUS INFUSION) [Suspect]
     Indication: GESTATIONAL TROPHOBLASTIC TUMOUR
     Dosage: (CYCLE 1, INTRAVENOUS (NOT OTHERWISE SPECIFIED)) (CYCLE 2, INTRAVENOUS (NOT OTHERWISE SPECIFIED)) (C
     Route: 042
     Dates: start: 20080928, end: 20080928
  12. METHOTREXATE (METHOTREXATE) (INTRAVENOUS INFUSION) [Suspect]
     Indication: GESTATIONAL TROPHOBLASTIC TUMOUR
     Dosage: (CYCLE 1, INTRAVENOUS (NOT OTHERWISE SPECIFIED)) (CYCLE 2, INTRAVENOUS (NOT OTHERWISE SPECIFIED)) (C
     Route: 042
     Dates: start: 20081001, end: 20081002
  13. METHOTREXATE (METHOTREXATE) (INTRAVENOUS INFUSION) [Suspect]
     Indication: GESTATIONAL TROPHOBLASTIC TUMOUR
     Dosage: (CYCLE 1, INTRAVENOUS (NOT OTHERWISE SPECIFIED)) (CYCLE 2, INTRAVENOUS (NOT OTHERWISE SPECIFIED)) (C
     Route: 042
     Dates: start: 20080929, end: 20080929
  14. ETOPOSIDE (ETOPOSIDE) (INTRAVENOUS INFUSION) [Suspect]
     Indication: GESTATIONAL TROPHOBLASTIC TUMOUR
     Dosage: (CYCLE 1, INTRAVENOUS (NOT OTHERWISE SPECIFIED)) (CYCLE 2, INTRAVENOUS (NOT OTHERWISE SPECIFIED)) (C
     Route: 042
     Dates: start: 20080928, end: 20080928
  15. ETOPOSIDE (ETOPOSIDE) (INTRAVENOUS INFUSION) [Suspect]
     Indication: GESTATIONAL TROPHOBLASTIC TUMOUR
     Dosage: (CYCLE 1, INTRAVENOUS (NOT OTHERWISE SPECIFIED)) (CYCLE 2, INTRAVENOUS (NOT OTHERWISE SPECIFIED)) (C
     Route: 042
     Dates: start: 20081001, end: 20081002
  16. ETOPOSIDE (ETOPOSIDE) (INTRAVENOUS INFUSION) [Suspect]
     Indication: GESTATIONAL TROPHOBLASTIC TUMOUR
     Dosage: (CYCLE 1, INTRAVENOUS (NOT OTHERWISE SPECIFIED)) (CYCLE 2, INTRAVENOUS (NOT OTHERWISE SPECIFIED)) (C
     Route: 042
     Dates: start: 20080929, end: 20080929

REACTIONS (14)
  - PULMONARY OEDEMA [None]
  - DEHYDRATION [None]
  - BLOOD POTASSIUM INCREASED [None]
  - BLOOD PHOSPHORUS INCREASED [None]
  - TUMOUR LYSIS SYNDROME [None]
  - RENAL FAILURE ACUTE [None]
  - BLOOD LACTATE DEHYDROGENASE INCREASED [None]
  - FUNGAEMIA [None]
  - OESOPHAGITIS HAEMORRHAGIC [None]
  - NAUSEA [None]
  - BLOOD URIC ACID INCREASED [None]
  - VOMITING [None]
  - DEEP VEIN THROMBOSIS [None]
  - CARDIAC FAILURE CONGESTIVE [None]
